FAERS Safety Report 5867038-9 (Version None)
Quarter: 2008Q3

REPORT INFORMATION
  Report Type: 
  Country: None (occurrence: None)
  Receive Date: 20080902
  Receipt Date: 20080821
  Transmission Date: 20090109
  Serious: Yes (Other)
  Sender: FDA-Public Use
  Company Number: B0480362B

PATIENT
  Sex: Male
  Weight: 3.5 kg

DRUGS (6)
  1. SALBUTAMOL [Suspect]
     Indication: ASTHMA
  2. AMINOPHYLLINE [Suspect]
     Indication: ASTHMA
  3. ATROVENT [Suspect]
     Indication: ASTHMA
  4. OXYGEN [Suspect]
     Indication: ASTHMA
  5. HYDROCORTISONE [Suspect]
     Indication: ASTHMA
  6. SALMETEROL [Concomitant]

REACTIONS (8)
  - APGAR SCORE LOW [None]
  - CAESAREAN SECTION [None]
  - FOETAL DISTRESS SYNDROME [None]
  - MATERNAL DRUGS AFFECTING FOETUS [None]
  - NEONATAL RESPIRATORY FAILURE [None]
  - PREMATURE BABY [None]
  - RESPIRATORY DISORDER [None]
  - TACHYCARDIA FOETAL [None]
